FAERS Safety Report 14948729 (Version 3)
Quarter: 2018Q3

REPORT INFORMATION
  Report Type: Spontaneous
  Country: US (occurrence: US)
  Receive Date: 20180529
  Receipt Date: 20180724
  Transmission Date: 20181010
  Serious: No
  Sender: FDA-Public Use
  Company Number: US-LEXICON PHARMACEUTICALS, INC-18-1606-00577

PATIENT
  Sex: Male

DRUGS (17)
  1. ERGOCALCIFEROL. [Concomitant]
     Active Substance: ERGOCALCIFEROL
  2. ATIVAN [Concomitant]
     Active Substance: LORAZEPAM
  3. NITROSTAT [Concomitant]
     Active Substance: NITROGLYCERIN
  4. TELOTRISTAT ETHYL [Suspect]
     Active Substance: TELOTRISTAT ETHYL
     Indication: CARCINOID SYNDROME
     Route: 048
     Dates: start: 201711
  5. TELOTRISTAT ETHYL [Suspect]
     Active Substance: TELOTRISTAT ETHYL
     Route: 048
     Dates: start: 20180419
  6. SODIUM BICARBONATE. [Concomitant]
     Active Substance: SODIUM BICARBONATE
  7. IMITREX [Concomitant]
     Active Substance: SUMATRIPTAN SUCCINATE
  8. REMEON [Concomitant]
  9. PEPCID [Concomitant]
     Active Substance: FAMOTIDINE
  10. PROLIA [Concomitant]
     Active Substance: DENOSUMAB
  11. PROZAC [Concomitant]
     Active Substance: FLUOXETINE HYDROCHLORIDE
  12. OXYCODENE [Concomitant]
  13. ALDACTONE [Concomitant]
     Active Substance: SPIRONOLACTONE
  14. CYANOCOBALAMIN. [Concomitant]
     Active Substance: CYANOCOBALAMIN
  15. VITAMIN E [Concomitant]
     Active Substance: .ALPHA.-TOCOPHEROL
  16. OCTREOTIDE ACETATE. [Concomitant]
     Active Substance: OCTREOTIDE ACETATE
  17. LUTETIUM DOTATATE (LU177) [Concomitant]
     Dates: start: 20161103, end: 20170721

REACTIONS (2)
  - Diarrhoea [Not Recovered/Not Resolved]
  - Constipation [Recovered/Resolved]
